FAERS Safety Report 26184073 (Version 1)
Quarter: 2025Q4

REPORT INFORMATION
  Report Type: Report from Study
  Country: US (occurrence: US)
  Receive Date: 20251222
  Receipt Date: 20251222
  Transmission Date: 20260118
  Serious: Yes (Hospitalization)
  Sender: JOHNSON AND JOHNSON
  Company Number: US-JNJFOC-20251216956

PATIENT
  Age: 63 Year
  Sex: Male

DRUGS (2)
  1. SPRAVATO [Suspect]
     Active Substance: ESKETAMINE
     Indication: Depression
     Dosage: ^56 MG, 1 TOTAL DOSE^
     Route: 045
     Dates: start: 20250421, end: 20250421
  2. SPRAVATO [Suspect]
     Active Substance: ESKETAMINE
     Dosage: ^84 MG, 17 TOTAL DOSES^
     Route: 045
     Dates: start: 20250425, end: 20250924

REACTIONS (5)
  - Spinal fracture [Unknown]
  - Cervical vertebral fracture [Unknown]
  - Fall [Unknown]
  - Skin laceration [Unknown]
  - Ankle fracture [Unknown]

NARRATIVE: CASE EVENT DATE: 20250920
